FAERS Safety Report 24126028 (Version 3)
Quarter: 2024Q3

REPORT INFORMATION
  Report Type: Spontaneous
  Country: US (occurrence: US)
  Receive Date: 20240723
  Receipt Date: 20240808
  Transmission Date: 20241017
  Serious: No
  Sender: PFIZER
  Company Number: US-PFIZER INC-PV202300181029

PATIENT
  Age: 61 Year
  Sex: Female
  Weight: 51.3 kg

DRUGS (7)
  1. BRAFTOVI [Suspect]
     Active Substance: ENCORAFENIB
     Indication: Pancreatic carcinoma
     Dosage: 300 MG, DAILY (FOR 30 DAYS)
     Route: 048
  2. BRAFTOVI [Suspect]
     Active Substance: ENCORAFENIB
     Indication: Adenocarcinoma pancreas
     Dosage: 150 MG, 2X/DAY
     Route: 048
  3. COBIMETINIB [Suspect]
     Active Substance: COBIMETINIB
     Dosage: 20 MG
  4. XANAX [Concomitant]
     Active Substance: ALPRAZOLAM
     Dosage: 0.25 MG, DAILY (NIGHTLY AS NEEDED)
     Route: 048
     Dates: start: 20220607
  5. NEURONTIN [Concomitant]
     Active Substance: GABAPENTIN
     Dosage: 100 MG, 2X/DAY
     Route: 048
     Dates: start: 20230605
  6. GEMZAR [Concomitant]
     Active Substance: GEMCITABINE HYDROCHLORIDE
     Dosage: UNK
  7. ABRAXANE [Concomitant]
     Active Substance: PACLITAXEL
     Dosage: UNK

REACTIONS (6)
  - Neoplasm recurrence [Unknown]
  - Nausea [Unknown]
  - Constipation [Unknown]
  - Abdominal pain [Unknown]
  - Headache [Unknown]
  - Off label use [Unknown]
